FAERS Safety Report 12111216 (Version 1)
Quarter: 2016Q1

REPORT INFORMATION
  Report Type: Spontaneous
  Country: FR (occurrence: FR)
  Receive Date: 20160224
  Receipt Date: 20160224
  Transmission Date: 20160526
  Serious: No
  Sender: FDA-Public Use
  Company Number: FR-JAZZ-2015-FR-007357

PATIENT
  Age: 61 Year
  Sex: Male
  Weight: 80 kg

DRUGS (7)
  1. IMOVANE [Concomitant]
     Active Substance: ZOPICLONE
     Dosage: 3.75 MG, UNK
     Route: 048
  2. ATARAX [Concomitant]
     Active Substance: HYDROXYZINE\HYDROXYZINE HYDROCHLORIDE
     Dosage: 50 MG, UNK
     Route: 048
  3. PRIALT [Suspect]
     Active Substance: ZICONOTIDE ACETATE
     Indication: NEURALGIA
     Dosage: 0.021 ?G, QH
     Route: 037
     Dates: start: 20150904
  4. DUPHALAC [Concomitant]
     Active Substance: LACTULOSE
  5. ZOPHREN [Concomitant]
     Active Substance: ONDANSETRON
  6. PROZAC [Concomitant]
     Active Substance: FLUOXETINE HYDROCHLORIDE
     Dosage: 60 MG, UNK
     Route: 048
  7. MORPHINE [Suspect]
     Active Substance: MORPHINE
     Indication: NEURALGIA
     Dosage: 0.012 MG, QH
     Route: 037
     Dates: start: 20140904

REACTIONS (2)
  - Erythema [Recovered/Resolved]
  - Pruritus [Recovered/Resolved]

NARRATIVE: CASE EVENT DATE: 20140904
